FAERS Safety Report 5051919-2 (Version None)
Quarter: 2006Q3

REPORT INFORMATION
  Report Type: 
  Country: None (occurrence: None)
  Receive Date: 20060713
  Receipt Date: 20060713
  Transmission Date: 20061208
  Serious: Yes (Hospitalization)
  Sender: FDA-Public Use
  Company Number: None

PATIENT
  Age: 72 Year
  Sex: Female
  Weight: 57.7883 kg

DRUGS (8)
  1. GEMCITABINE [Suspect]
     Indication: OROPHARYNGEAL CANCER RECURRENT
     Dosage: 800 MG/M2 IV
     Route: 042
     Dates: start: 20060601
  2. GEMCITABINE [Suspect]
     Indication: OROPHARYNGEAL CANCER RECURRENT
     Dosage: 800 MG/M2 IV
     Route: 042
     Dates: start: 20060608
  3. GEMCITABINE [Suspect]
     Indication: OROPHARYNGEAL CANCER RECURRENT
     Dosage: 800 MG/M2 IV
     Route: 042
     Dates: start: 20060622
  4. GEMCITABINE [Suspect]
     Indication: OROPHARYNGEAL CANCER RECURRENT
     Dosage: 800 MG/M2 IV
     Route: 042
     Dates: start: 20060630
  5. DOXORUBICIN HCL [Suspect]
     Indication: OROPHARYNGEAL CANCER RECURRENT
     Dosage: 25 MG /M2 IV
     Route: 042
     Dates: start: 20060601
  6. DOXORUBICIN HCL [Suspect]
     Indication: OROPHARYNGEAL CANCER RECURRENT
     Dosage: 25 MG /M2 IV
     Route: 042
     Dates: start: 20060608
  7. DOXORUBICIN HCL [Suspect]
     Indication: OROPHARYNGEAL CANCER RECURRENT
     Dosage: 25 MG /M2 IV
     Route: 042
     Dates: start: 20060622
  8. DOXORUBICIN HCL [Suspect]
     Indication: OROPHARYNGEAL CANCER RECURRENT
     Dosage: 25 MG /M2 IV
     Route: 042
     Dates: start: 20060630

REACTIONS (2)
  - NAUSEA [None]
  - VOMITING [None]
